FAERS Safety Report 9856463 (Version 2)
Quarter: 2014Q1

REPORT INFORMATION
  Report Type: Spontaneous
  Country: US (occurrence: US)
  Receive Date: 20140130
  Receipt Date: 20140214
  Transmission Date: 20141002
  Serious: Yes (Other)
  Sender: FDA-Public Use
  Company Number: US-JNJFOC-20140114234

PATIENT
  Sex: 0

DRUGS (5)
  1. RISPERIDAL [Suspect]
     Indication: MENTAL DISORDER
     Route: 065
  2. RISPERIDAL [Suspect]
     Indication: MAJOR DEPRESSION
     Route: 065
  3. RISPERIDAL [Suspect]
     Indication: BIPOLAR DISORDER
     Route: 065
  4. RISPERIDAL [Suspect]
     Indication: DEMENTIA
     Route: 065
  5. RISPERIDAL [Suspect]
     Indication: SCHIZOPHRENIA
     Route: 065

REACTIONS (6)
  - Cerebrovascular accident [Unknown]
  - Coronary artery bypass [Unknown]
  - Cardiac failure [Unknown]
  - Diabetes mellitus [Unknown]
  - Coronary angioplasty [Unknown]
  - Acute myocardial infarction [Unknown]
